FAERS Safety Report 10226791 (Version 1)
Quarter: 2014Q2

REPORT INFORMATION
  Report Type: Spontaneous
  Country: DE (occurrence: DE)
  Receive Date: 20140610
  Receipt Date: 20140610
  Transmission Date: 20141212
  Serious: Yes (Life-Threatening, Hospitalization)
  Sender: FDA-Public Use
  Company Number: DE-009507513-1406DEU003456

PATIENT
  Age: 73 Year
  Sex: Male
  Weight: 78 kg

DRUGS (6)
  1. JANUVIA [Suspect]
     Indication: DIABETES MELLITUS
     Dosage: DAILY DOSE: 1 TBL;100 MILIGRAM(S)
     Route: 048
     Dates: end: 201304
  2. METFORMIN HYDROCHLORIDE [Concomitant]
     Indication: DIABETES MELLITUS
     Dosage: 2000 MG, UNK
     Route: 048
  3. HYGROTON [Concomitant]
     Dosage: 1 TBL.; 25 MILIGRAM(S)
     Route: 048
  4. DIOVAN [Concomitant]
     Dosage: 1TBL; 160MILIGRAM(S)
     Route: 048
  5. ASPIRIN [Concomitant]
     Dosage: 100 MG, UNK
     Route: 048
  6. SIMVASTATIN [Concomitant]
     Dosage: 40 MG, UNK
     Route: 048

REACTIONS (1)
  - Pancreatic carcinoma metastatic [Not Recovered/Not Resolved]
